FAERS Safety Report 20418379 (Version 3)
Quarter: 2022Q2

REPORT INFORMATION
  Report Type: Report from Study
  Country: FR (occurrence: FR)
  Receive Date: 20220202
  Receipt Date: 20220523
  Transmission Date: 20220720
  Serious: Yes (Death)
  Sender: FDA-Public Use
  Company Number: FR-JNJFOC-20220120382

PATIENT
  Age: 64 Year
  Sex: Female
  Weight: 64 kg

DRUGS (6)
  1. AMIVANTAMAB [Suspect]
     Active Substance: AMIVANTAMAB
     Indication: Non-small cell lung cancer
     Dosage: DAY 1
     Route: 042
     Dates: start: 20220110
  2. AMIVANTAMAB [Suspect]
     Active Substance: AMIVANTAMAB
     Dosage: DAY 2?DOSE: 1050 MG (PATIENT LESS THAN 80 KG)
     Route: 042
  3. SOLU-MEDROL [Concomitant]
     Active Substance: METHYLPREDNISOLONE SODIUM SUCCINATE
     Indication: Premedication
     Route: 065
  4. ONDANSETRON [Concomitant]
     Active Substance: ONDANSETRON
     Indication: Premedication
     Route: 065
  5. PERFALGAN [Concomitant]
     Active Substance: ACETAMINOPHEN
     Indication: Premedication
     Route: 065
  6. POLARAMINE [Concomitant]
     Active Substance: DEXCHLORPHENIRAMINE MALEATE
     Indication: Premedication
     Route: 065

REACTIONS (3)
  - Death [Fatal]
  - Hypersensitivity [Unknown]
  - Oxygen saturation decreased [Unknown]
